FAERS Safety Report 4494944-2 (Version None)
Quarter: 2004Q4

REPORT INFORMATION
  Report Type: 
  Country: None (occurrence: None)
  Receive Date: 20041105
  Receipt Date: 20041105
  Transmission Date: 20050328
  Serious: Yes (Death, Life-Threatening)
  Sender: FDA-Public Use
  Company Number: None

PATIENT
  Age: 86 Year
  Sex: Male
  Weight: 69.8539 kg

DRUGS (1)
  1. DDAVP [Suspect]
     Indication: URINARY TRACT DISORDER
     Dosage: BEFORE BEDTIME OR WHEN NEEDED; SINCE SURGERY OFF AND ON

REACTIONS (6)
  - BACK INJURY [None]
  - BLOOD SODIUM DECREASED [None]
  - FALL [None]
  - LOSS OF CONSCIOUSNESS [None]
  - MEDICATION ERROR [None]
  - MENTAL IMPAIRMENT [None]
